FAERS Safety Report 23821896 (Version 1)
Quarter: 2024Q2

REPORT INFORMATION
  Report Type: Spontaneous
  Country: HR (occurrence: None)
  Receive Date: 20240506
  Receipt Date: 20240506
  Transmission Date: 20240716
  Serious: Yes (Other)
  Sender: FDA-Public Use
  Company Number: 2024A106173

PATIENT
  Age: 36 Year
  Sex: Female

DRUGS (6)
  1. QUETIAPINE [Suspect]
     Active Substance: QUETIAPINE
     Indication: Suicidal ideation
     Dosage: 20 TABLETS QUETIAPINE FROM 100 MG
     Route: 048
     Dates: start: 20240309, end: 20240309
  2. ALPRAZOLAM [Suspect]
     Active Substance: ALPRAZOLAM
     Indication: Suicidal ideation
     Dosage: 30 TBL MISARA OD 0.25MG
     Route: 048
     Dates: start: 20240309, end: 20240309
  3. NITRAZEPAM [Suspect]
     Active Substance: NITRAZEPAM
     Indication: Suicidal ideation
     Dosage: 10 TABLET CERSONA OD 5 MG
     Route: 048
     Dates: start: 20240309, end: 20240309
  4. ZOLPIDEM TARTRATE [Suspect]
     Active Substance: ZOLPIDEM TARTRATE
     Indication: Suicidal ideation
     Dosage: 20 TABLET SANVALA OD 5 MG
     Route: 048
     Dates: start: 20240309, end: 20240309
  5. DULOXETINE HYDROCHLORIDE [Suspect]
     Active Substance: DULOXETINE HYDROCHLORIDE
     Indication: Suicidal ideation
     Dosage: 14 TABLETS DULSEVIA OD 30 MG
     Route: 048
     Dates: start: 20240309, end: 20240309
  6. XANAX [Suspect]
     Active Substance: ALPRAZOLAM
     Indication: Suicidal ideation
     Dosage: 20 TBL XANAXA OD 0,5 MG
     Route: 048
     Dates: start: 20240309, end: 20240309

REACTIONS (3)
  - Intentional overdose [Unknown]
  - Suicide attempt [Unknown]
  - Loss of consciousness [Unknown]

NARRATIVE: CASE EVENT DATE: 20240309
